FAERS Safety Report 10563536 (Version 1)
Quarter: 2014Q4

REPORT INFORMATION
  Report Type: Spontaneous
  Country: US (occurrence: None)
  Receive Date: 20141103
  Receipt Date: 20141103
  Transmission Date: 20150529
  Serious: Yes (Life-Threatening, Hospitalization)
  Sender: FDA-Public Use
  Company Number: None

PATIENT
  Age: 38 Year
  Sex: Female

DRUGS (1)
  1. PARAGARD T380A [Suspect]
     Active Substance: COPPER
     Dates: start: 20080131

REACTIONS (2)
  - Pregnancy with contraceptive device [None]
  - Ectopic pregnancy [None]

NARRATIVE: CASE EVENT DATE: 20080430
